FAERS Safety Report 4642685-0 (Version None)
Quarter: 2005Q2

REPORT INFORMATION
  Report Type: 
  Country: None (occurrence: None)
  Receive Date: 20050420
  Receipt Date: 20050405
  Transmission Date: 20051028
  Serious: No
  Sender: FDA-Public Use
  Company Number: DSA_25345_2004

PATIENT
  Age: 82 Year
  Sex: Female

DRUGS (7)
  1. TEVETEN [Suspect]
     Dosage: DF PO
     Route: 048
     Dates: start: 20040901, end: 20040901
  2. OXYCONTIN [Concomitant]
  3. GABAPENTIN [Concomitant]
  4. CALCIUM GLUCONATE [Concomitant]
  5. TYLENOL (CAPLET) [Concomitant]
  6. NEURONTIN [Concomitant]
  7. PANTALOC [Concomitant]

REACTIONS (3)
  - DIZZINESS [None]
  - HYPOAESTHESIA [None]
  - STRESS [None]
